FAERS Safety Report 5019890-7 (Version None)
Quarter: 2006Q2

REPORT INFORMATION
  Report Type: 
  Country: None (occurrence: None)
  Receive Date: 20060605
  Receipt Date: 20060605
  Transmission Date: 20061013
  Serious: Yes (Hospitalization)
  Sender: FDA-Public Use
  Company Number: None

PATIENT

DRUGS (2)
  1. DOCETAXEL [Suspect]
  2. CARBOPLATIN [Suspect]

REACTIONS (3)
  - ANAEMIA [None]
  - ORAL INTAKE REDUCED [None]
  - WEIGHT DECREASED [None]
